FAERS Safety Report 12004734 (Version 7)
Quarter: 2017Q1

REPORT INFORMATION
  Report Type: Spontaneous
  Country: GB (occurrence: GB)
  Receive Date: 20160204
  Receipt Date: 20170302
  Transmission Date: 20170428
  Serious: Yes (Hospitalization, Other)
  Sender: FDA-Public Use
  Company Number: GB-JNJFOC-20151010758

PATIENT
  Age: 70 Year
  Sex: Female

DRUGS (2)
  1. SIMPONI [Suspect]
     Active Substance: GOLIMUMAB
     Indication: PRODUCT USED FOR UNKNOWN INDICATION
     Route: 058
     Dates: start: 20151224
  2. SIMPONI [Suspect]
     Active Substance: GOLIMUMAB
     Indication: PRODUCT USED FOR UNKNOWN INDICATION
     Route: 058
     Dates: end: 201510

REACTIONS (5)
  - Lymphoedema [Unknown]
  - Foot operation [Unknown]
  - Cellulitis [Not Recovered/Not Resolved]
  - Lower respiratory tract infection [Unknown]
  - Ankle operation [Unknown]

NARRATIVE: CASE EVENT DATE: 201510
